FAERS Safety Report 4383814-6 (Version None)
Quarter: 2004Q2

REPORT INFORMATION
  Report Type: 
  Country: None (occurrence: None)
  Receive Date: 20040608
  Receipt Date: 20031105
  Transmission Date: 20050107
  Serious: Yes (Hospitalization, Other)
  Sender: FDA-Public Use
  Company Number: 200314089BCC

PATIENT
  Age: 80 Year
  Sex: Female
  Weight: 58.9676 kg

DRUGS (2)
  1. ALEVE (CAPLET) [Suspect]
     Indication: ARTHRALGIA
     Dosage: 220 MG, QD, ORAL
     Route: 048
     Dates: start: 20030921
  2. NORVASC [Concomitant]

REACTIONS (2)
  - DYSPNOEA [None]
  - WHEEZING [None]
